FAERS Safety Report 6258900-6 (Version None)
Quarter: 2009Q3

REPORT INFORMATION
  Report Type: 
  Country: None (occurrence: None)
  Receive Date: 20090707
  Receipt Date: 20090629
  Transmission Date: 20100115
  Serious: Yes (Hospitalization)
  Sender: FDA-Public Use
  Company Number: AR-AMGEN-US354040

PATIENT
  Sex: Male
  Weight: 60 kg

DRUGS (4)
  1. ENBREL [Suspect]
     Indication: PSORIASIS
     Route: 058
     Dates: start: 20060727, end: 20090410
  2. ATORVASTATIN CALCIUM [Concomitant]
     Indication: BLOOD CHOLESTEROL
     Dosage: 1 TABLET 20 MG-FREQUENCY NOT SPECIFIED
     Route: 048
  3. DOMPERIDONE [Concomitant]
     Indication: GASTROINTESTINAL DISORDER
     Dosage: UNKNOWN
     Route: 065
  4. ASPIRIN [Concomitant]
     Indication: ANTIPLATELET THERAPY
     Dosage: 82 MG/1 TABLET FREQUENCY NOT SPECIFIED
     Route: 048

REACTIONS (2)
  - MYOCARDIAL INFARCTION [None]
  - PANCREATIC NEOPLASM [None]
